FAERS Safety Report 20781358 (Version 2)
Quarter: 2022Q2

REPORT INFORMATION
  Report Type: Spontaneous
  Country: US (occurrence: US)
  Receive Date: 20220504
  Receipt Date: 20220515
  Transmission Date: 20220720
  Serious: Yes (Congenital Anomaly, Other)
  Sender: FDA-Public Use
  Company Number: US-LUPIN PHARMACEUTICALS INC.-2022-06263

PATIENT
  Age: 0 Year
  Sex: Male
  Weight: 4.159 kg

DRUGS (3)
  1. METHERGINE [Suspect]
     Active Substance: METHYLERGONOVINE MALEATE
     Indication: Product used for unknown indication
     Dosage: UNK, SINGLE
     Route: 064
     Dates: start: 20220317
  2. ONDANSETRON [Suspect]
     Active Substance: ONDANSETRON
     Indication: Nausea
     Dosage: 4 MILLIGRAM, PRN
     Route: 064
  3. VITAMINS [Suspect]
     Active Substance: VITAMINS
     Indication: Product used for unknown indication
     Dosage: UNK
     Route: 064

REACTIONS (11)
  - Foetal exposure during pregnancy [Unknown]
  - Foetal distress syndrome [Unknown]
  - Hyporesponsive to stimuli [Unknown]
  - Neonatal respiratory failure [Unknown]
  - Arrhythmia neonatal [Unknown]
  - Jaundice neonatal [Unknown]
  - Neonatal hypocalcaemia [Unknown]
  - Hypokalaemia [Unknown]
  - Thrombocytopenia neonatal [Unknown]
  - Anaemia neonatal [Unknown]
  - Ill-defined disorder [Unknown]

NARRATIVE: CASE EVENT DATE: 20220317
